FAERS Safety Report 20143003 (Version 1)
Quarter: 2021Q4

REPORT INFORMATION
  Report Type: Spontaneous
  Country: JP (occurrence: JP)
  Receive Date: 20211202
  Receipt Date: 20211202
  Transmission Date: 20220303
  Serious: Yes (Hospitalization)
  Sender: FDA-Public Use
  Company Number: JP-CELLTRION INC.-2021JP016195

PATIENT

DRUGS (21)
  1. TRASTUZUMAB [Suspect]
     Active Substance: TRASTUZUMAB
     Indication: Invasive ductal breast carcinoma
     Dosage: COURSE 1
     Route: 065
  2. TRASTUZUMAB [Suspect]
     Active Substance: TRASTUZUMAB
     Dosage: COURSE 2
     Route: 065
  3. TRASTUZUMAB [Suspect]
     Active Substance: TRASTUZUMAB
     Dosage: COURSE 3
     Route: 065
  4. TRASTUZUMAB [Suspect]
     Active Substance: TRASTUZUMAB
     Dosage: COURSE 4
     Route: 065
  5. EPIRUBICIN HYDROCHLORIDE [Suspect]
     Active Substance: EPIRUBICIN HYDROCHLORIDE
     Indication: Invasive ductal breast carcinoma
     Dosage: TOTAL DOSE ADMINISTERED: 360 MG/M2, COURSE 1
     Route: 065
  6. EPIRUBICIN HYDROCHLORIDE [Suspect]
     Active Substance: EPIRUBICIN HYDROCHLORIDE
     Dosage: TOTAL DOSE ADMINISTERED: 360 MG/M2, COURSE 2
     Route: 065
  7. EPIRUBICIN HYDROCHLORIDE [Suspect]
     Active Substance: EPIRUBICIN HYDROCHLORIDE
     Dosage: TOTAL DOSE ADMINISTERED: 360 MG/M2, COURSE 3
     Route: 065
  8. EPIRUBICIN HYDROCHLORIDE [Suspect]
     Active Substance: EPIRUBICIN HYDROCHLORIDE
     Dosage: TOTAL DOSE ADMINISTERED: 360 MG/M2, COURSE 4
     Route: 065
  9. CYCLOPHOSPHAMIDE [Suspect]
     Active Substance: CYCLOPHOSPHAMIDE
     Indication: Invasive ductal breast carcinoma
     Dosage: COURSE 1
     Route: 065
  10. CYCLOPHOSPHAMIDE [Suspect]
     Active Substance: CYCLOPHOSPHAMIDE
     Dosage: COURSE 2
     Route: 065
  11. CYCLOPHOSPHAMIDE [Suspect]
     Active Substance: CYCLOPHOSPHAMIDE
     Dosage: COURSE 3
     Route: 065
  12. CYCLOPHOSPHAMIDE [Suspect]
     Active Substance: CYCLOPHOSPHAMIDE
     Dosage: COURSE 4
     Route: 065
  13. DOCETAXEL [Suspect]
     Active Substance: DOCETAXEL
     Indication: Invasive ductal breast carcinoma
     Dosage: COURSE 1
     Route: 065
  14. DOCETAXEL [Suspect]
     Active Substance: DOCETAXEL
     Dosage: COURSE 2
     Route: 065
  15. DOCETAXEL [Suspect]
     Active Substance: DOCETAXEL
     Dosage: COURSE 3
     Route: 065
  16. DOCETAXEL [Suspect]
     Active Substance: DOCETAXEL
     Dosage: COURSE 4
     Route: 065
  17. PERTUZUMAB [Suspect]
     Active Substance: PERTUZUMAB
     Indication: Invasive ductal breast carcinoma
     Dosage: COURSE 1
     Route: 065
  18. PERTUZUMAB [Suspect]
     Active Substance: PERTUZUMAB
     Dosage: COURSE 2
     Route: 065
  19. PERTUZUMAB [Suspect]
     Active Substance: PERTUZUMAB
     Dosage: COURSE 3
     Route: 065
  20. PERTUZUMAB [Suspect]
     Active Substance: PERTUZUMAB
     Dosage: COURSE 4
     Route: 065
  21. URSODIOL [Concomitant]
     Active Substance: URSODIOL

REACTIONS (3)
  - Cardiac failure [Recovered/Resolved]
  - Sinus tachycardia [Unknown]
  - Diarrhoea [Unknown]
